FAERS Safety Report 12504859 (Version 1)
Quarter: 2016Q2

REPORT INFORMATION
  Report Type: Report from Study
  Country: CA (occurrence: CA)
  Receive Date: 20160628
  Receipt Date: 20160628
  Transmission Date: 20160815
  Serious: Yes (Other)
  Sender: FDA-Public Use
  Company Number: CA-AMGEN-CANSL2016013057

PATIENT
  Age: 56 Year
  Sex: Female

DRUGS (5)
  1. REPATHA [Suspect]
     Active Substance: EVOLOCUMAB
     Indication: PRODUCT USED FOR UNKNOWN INDICATION
     Dosage: (140 MG/1.0ML), UNK
     Route: 065
     Dates: start: 20151208
  2. CLONAZEPAM. [Concomitant]
     Active Substance: CLONAZEPAM
  3. COVERSYL [Concomitant]
     Active Substance: PERINDOPRIL
  4. DIVALPROEX [Concomitant]
     Active Substance: DIVALPROEX SODIUM
  5. ALPRAZOLAM. [Concomitant]
     Active Substance: ALPRAZOLAM

REACTIONS (2)
  - Pollakiuria [Unknown]
  - Dysuria [Unknown]

NARRATIVE: CASE EVENT DATE: 20160125
